FAERS Safety Report 14662018 (Version 1)
Quarter: 2018Q1

REPORT INFORMATION
  Report Type: Spontaneous
  Country: FR (occurrence: FR)
  Receive Date: 20180320
  Receipt Date: 20180320
  Transmission Date: 20180509
  Serious: Yes (Other)
  Sender: FDA-Public Use
  Company Number: FR-MERCK KGAA-2044172

PATIENT
  Age: 52 Year
  Sex: Female

DRUGS (1)
  1. NOVOTHYROX [Suspect]
     Active Substance: LEVOTHYROXINE SODIUM
     Indication: HYPOTHYROIDISM

REACTIONS (18)
  - Dizziness [Recovering/Resolving]
  - Depression [None]
  - Tachycardia [None]
  - Myalgia [None]
  - Paralysis [None]
  - Blood thyroid stimulating hormone increased [Recovering/Resolving]
  - Mobility decreased [None]
  - Insomnia [None]
  - Asthenia [Not Recovered/Not Resolved]
  - Impaired work ability [None]
  - Spinal pain [None]
  - Nervousness [None]
  - Nausea [None]
  - Arthralgia [Recovering/Resolving]
  - Loss of personal independence in daily activities [None]
  - Sleep disorder [Not Recovered/Not Resolved]
  - Psychiatric symptom [None]
  - Disturbance in attention [None]

NARRATIVE: CASE EVENT DATE: 20170908
